FAERS Safety Report 8118091-3 (Version None)
Quarter: 2012Q1

REPORT INFORMATION
  Report Type: 
  Country: None (occurrence: None)
  Receive Date: 20120207
  Receipt Date: 20120202
  Transmission Date: 20120608
  Serious: No
  Sender: FDA-Public Use
  Company Number: US-PFIZER INC-2012029742

PATIENT
  Sex: Female
  Weight: 46.712 kg

DRUGS (1)
  1. PRISTIQ [Suspect]
     Indication: DEPRESSION
     Dosage: 50 MG, 1X/DAY
     Route: 048
     Dates: start: 20120130

REACTIONS (7)
  - NAUSEA [None]
  - NERVOUSNESS [None]
  - YAWNING [None]
  - AGITATION [None]
  - INSOMNIA [None]
  - DRY MOUTH [None]
  - VISION BLURRED [None]
